FAERS Safety Report 5507562-1 (Version None)
Quarter: 2007Q4

REPORT INFORMATION
  Report Type: 
  Country: None (occurrence: None)
  Receive Date: 20071106
  Receipt Date: 20071026
  Transmission Date: 20080405
  Serious: Yes (Life-Threatening, Hospitalization)
  Sender: FDA-Public Use
  Company Number: FR-ROCHE-527863

PATIENT
  Age: 64 Year
  Sex: Female

DRUGS (10)
  1. RIVOTRIL [Suspect]
     Route: 048
     Dates: start: 20060327, end: 20060330
  2. PRONTALGINE [Suspect]
     Route: 048
     Dates: end: 20060330
  3. MORPHINE [Suspect]
     Dosage: FORM REPORTED AS: INJECTABLE SOLUTION.
     Route: 058
     Dates: start: 20060327, end: 20060331
  4. LEVOTHYROX [Concomitant]
     Indication: HYPOTHYROIDISM
     Route: 048
  5. CORTANCYL [Concomitant]
     Route: 048
  6. CLAFORAN [Concomitant]
     Dosage: DOSE REPORTED AS THIRD PER DAY
  7. HYPERIUM [Concomitant]
     Dosage: DOSE REPORTED AS THIRD PER DAY
  8. INEXIUM [Concomitant]
  9. NICARDIPINE HCL [Concomitant]
     Dosage: DOSE REPORTED AS 20 MG THIRD PER DAY
  10. LOVENOX [Concomitant]

REACTIONS (5)
  - FALL [None]
  - MIOSIS [None]
  - SCOTOMA [None]
  - URINARY RETENTION [None]
  - VOMITING [None]
